FAERS Safety Report 6490423-1 (Version None)
Quarter: 2009Q4

REPORT INFORMATION
  Report Type: 
  Country: None (occurrence: None)
  Receive Date: 20091211
  Receipt Date: 20091204
  Transmission Date: 20100525
  Serious: No
  Sender: FDA-Public Use
  Company Number: US-ROXANE LABORATORIES, INC.-2009-RO-01220RO

PATIENT
  Sex: Female

DRUGS (2)
  1. ZOLPIDEM [Suspect]
     Indication: INSOMNIA
     Dosage: 10 MG
     Route: 048
  2. LORTAB [Concomitant]
     Indication: BACK PAIN

REACTIONS (1)
  - DRUG INEFFECTIVE [None]
